FAERS Safety Report 6924281-5 (Version None)
Quarter: 2010Q3

REPORT INFORMATION
  Report Type: 
  Country: None (occurrence: None)
  Receive Date: 20100811
  Receipt Date: 20100811
  Transmission Date: 20110219
  Serious: Yes (Life-Threatening, Hospitalization)
  Sender: FDA-Public Use
  Company Number: None

PATIENT
  Age: 71 Year
  Sex: Male
  Weight: 111.58 kg

DRUGS (1)
  1. CEFAZOLIN [Suspect]
     Indication: LOCALISED INFECTION
     Dates: start: 20100703, end: 20100703

REACTIONS (1)
  - ANAPHYLACTIC REACTION [None]
